FAERS Safety Report 12799976 (Version 2)
Quarter: 2019Q2

REPORT INFORMATION
  Report Type: Spontaneous
  Country: IT (occurrence: IT)
  Receive Date: 20160930
  Receipt Date: 20190509
  Transmission Date: 20190711
  Serious: Yes (Other)
  Sender: FDA-Public Use
  Company Number: IT-BAUSCH-BL-2014-004858

PATIENT
  Age: 12 Year

DRUGS (1)
  1. METRONIDAZOLE. [Suspect]
     Active Substance: METRONIDAZOLE
     Indication: HYPERGLYCINAEMIA
     Dosage: (10 MG/KG/D, 1 WK/MO) (CYCLIC MTZ COURSES (500 MG/DAY, 1 WEEK/MONTH)
     Route: 065

REACTIONS (1)
  - Axonal neuropathy [Recovering/Resolving]
